FAERS Safety Report 8596636-7 (Version None)
Quarter: 2012Q3

REPORT INFORMATION
  Report Type: 
  Country: None (occurrence: None)
  Receive Date: 20120815
  Receipt Date: 20120810
  Transmission Date: 20120928
  Serious: Yes (Other)
  Sender: FDA-Public Use
  Company Number: CHPA2012US015940

PATIENT
  Age: 80 Year
  Sex: Female

DRUGS (2)
  1. VOLTAREN [Suspect]
     Dosage: UNK, UNK
     Route: 061
     Dates: start: 20120401
  2. LOMOTIL [Concomitant]
     Indication: DIVERTICULITIS
     Route: 048

REACTIONS (3)
  - ACCIDENTAL EXPOSURE [None]
  - COLITIS MICROSCOPIC [None]
  - DIARRHOEA [None]
